FAERS Safety Report 10424618 (Version 5)
Quarter: 2015Q3

REPORT INFORMATION
  Report Type: Spontaneous
  Country: US (occurrence: US)
  Receive Date: 20140902
  Receipt Date: 20150714
  Transmission Date: 20151125
  Serious: Yes (Hospitalization, Other)
  Sender: FDA-Public Use
  Company Number: US-ACTELION-A-US2014-96689

PATIENT
  Age: 60 Year
  Sex: Female

DRUGS (5)
  1. TRACLEER [Suspect]
     Active Substance: BOSENTAN
     Dosage: 62.5 MG, BID
     Route: 048
     Dates: start: 20140226, end: 20140708
  2. ADCIRCA [Concomitant]
     Active Substance: TADALAFIL
  3. LASIX [Concomitant]
     Active Substance: FUROSEMIDE
  4. SPIRONOLACTONE. [Concomitant]
     Active Substance: SPIRONOLACTONE
  5. TRACLEER [Suspect]
     Active Substance: BOSENTAN
     Indication: PULMONARY ARTERIAL HYPERTENSION
     Dosage: 125 MG, BID
     Route: 048
     Dates: start: 20140709, end: 2014

REACTIONS (15)
  - Gastrooesophageal reflux disease [Recovering/Resolving]
  - Gastric haemorrhage [Recovered/Resolved]
  - Pneumonia viral [Unknown]
  - Deep vein thrombosis [Unknown]
  - Vomiting [Recovered/Resolved]
  - Gastrointestinal disorder [Recovering/Resolving]
  - Nausea [Recovered/Resolved]
  - Haematemesis [Recovered/Resolved]
  - Pain [Recovered/Resolved]
  - Urinary tract infection [Recovering/Resolving]
  - Back pain [Recovering/Resolving]
  - Muscular weakness [Recovered/Resolved]
  - Malaise [Recovered/Resolved]
  - Renal disorder [Recovered/Resolved]
  - Liver function test abnormal [Recovered/Resolved]
